FAERS Safety Report 5001395-0 (Version None)
Quarter: 2006Q2

REPORT INFORMATION
  Report Type: 
  Country: None (occurrence: None)
  Receive Date: 20060512
  Receipt Date: 20051024
  Transmission Date: 20061013
  Serious: Yes (Hospitalization, Disabling)
  Sender: FDA-Public Use
  Company Number: US-MERCK-0510USA08767

PATIENT
  Age: 48 Year
  Sex: Male
  Weight: 86 kg

DRUGS (13)
  1. VIOXX [Suspect]
     Indication: NECK PAIN
     Route: 048
     Dates: start: 20030428, end: 20041020
  2. VIOXX [Suspect]
     Indication: SHOULDER PAIN
     Route: 048
     Dates: start: 20030428, end: 20041020
  3. PENICILLIN (UNSPECIFIED) [Concomitant]
     Route: 065
  4. [THERAPY UNSPECIFIED] [Concomitant]
     Route: 065
  5. VICODIN [Concomitant]
     Route: 065
  6. IBUPROFEN [Concomitant]
     Indication: PAIN
     Route: 065
     Dates: start: 19990101
  7. NAPROXEN [Concomitant]
     Indication: PAIN
     Route: 065
     Dates: start: 19990101
  8. CELEBREX [Concomitant]
     Indication: PAIN
     Route: 065
     Dates: start: 19990101
  9. TYLENOL (CAPLET) [Concomitant]
     Indication: PAIN
     Route: 065
     Dates: start: 19990101
  10. ASPIRIN [Concomitant]
     Indication: PAIN
     Route: 065
     Dates: start: 19990101
  11. ADVIL [Concomitant]
     Route: 048
     Dates: start: 19990101, end: 20030401
  12. MOTRIN [Concomitant]
     Route: 048
     Dates: start: 19990101, end: 20030401
  13. NAPROSYN [Concomitant]
     Route: 048
     Dates: start: 19990101, end: 20030401

REACTIONS (5)
  - ARTHRITIS [None]
  - BLOOD CHOLESTEROL [None]
  - CARDIAC DISORDER [None]
  - GALLBLADDER DISORDER [None]
  - MYOCARDIAL INFARCTION [None]
